FAERS Safety Report 15072663 (Version 7)
Quarter: 2024Q1

REPORT INFORMATION
  Report Type: Other
  Country: AT (occurrence: None)
  Receive Date: 20180627
  Receipt Date: 20240312
  Transmission Date: 20240410
  Serious: Yes (Hospitalization)
  Sender: FDA-Public Use
  Company Number: AT-ROCHE-2114004

PATIENT
  Age: 75 Year
  Sex: Female
  Weight: 105 kg

DRUGS (53)
  1. HERCEPTIN [Suspect]
     Active Substance: TRASTUZUMAB
     Indication: HER2 positive breast cancer
     Route: 042
     Dates: start: 20171113, end: 20171113
  2. HERCEPTIN [Suspect]
     Active Substance: TRASTUZUMAB
     Route: 042
     Dates: start: 20180103, end: 20180329
  3. HERCEPTIN [Suspect]
     Active Substance: TRASTUZUMAB
     Route: 042
     Dates: start: 20171205, end: 20171205
  4. PERJETA [Suspect]
     Active Substance: PERTUZUMAB
     Indication: HER2 positive breast cancer
     Dosage: MOST RECENT DOSE PRIOR TO THE EVENT: 03/JAN/2018
     Route: 042
     Dates: start: 20171113, end: 20171113
  5. PERJETA [Suspect]
     Active Substance: PERTUZUMAB
     Route: 042
     Dates: start: 20171205, end: 20171205
  6. PERJETA [Suspect]
     Active Substance: PERTUZUMAB
     Route: 042
     Dates: start: 20180103, end: 20180329
  7. TAXOTERE [Suspect]
     Active Substance: DOCETAXEL
     Indication: HER2 positive breast cancer
     Route: 042
     Dates: start: 20171113, end: 20171205
  8. ABRAXANE [Suspect]
     Active Substance: PACLITAXEL
     Indication: HER2 positive breast cancer
     Route: 042
     Dates: start: 20180103, end: 20180307
  9. BISOPROLOL FUMARATE [Concomitant]
     Active Substance: BISOPROLOL FUMARATE
     Dates: start: 20180409, end: 20180519
  10. LEVOTHYROXINE SODIUM [Concomitant]
     Active Substance: LEVOTHYROXINE SODIUM
     Dates: end: 20180519
  11. DIPHENHYDRAMINE HYDROCHLORIDE [Concomitant]
     Active Substance: DIPHENHYDRAMINE HYDROCHLORIDE
     Dates: start: 20171113, end: 20180329
  12. DEXAMETHASONE [Concomitant]
     Active Substance: DEXAMETHASONE
     Dates: start: 20171113, end: 20180307
  13. DEXAMETHASONE [Concomitant]
     Active Substance: DEXAMETHASONE
     Dates: start: 20171113, end: 20180329
  14. DEXAMETHASONE [Concomitant]
     Active Substance: DEXAMETHASONE
     Dates: start: 20180509, end: 20180509
  15. LIPEGFILGRASTIM [Concomitant]
     Active Substance: LIPEGFILGRASTIM
     Dates: start: 20171113, end: 20180329
  16. PANTOPRAZOLE SODIUM [Concomitant]
     Active Substance: PANTOPRAZOLE SODIUM
     Dates: start: 20171113, end: 20180519
  17. ASCORBIC ACID\CALCIUM PHOSPHATE\CHOLECALCIFEROL\CITRIC ACID MONOHYDRAT [Concomitant]
     Active Substance: ASCORBIC ACID\CALCIUM PHOSPHATE\CHOLECALCIFEROL\CITRIC ACID MONOHYDRATE
     Dates: start: 20171115, end: 20180519
  18. GLANDOMED [Concomitant]
     Dates: start: 20171115, end: 20180519
  19. HYDROMORPHONE HYDROCHLORIDE [Concomitant]
     Active Substance: HYDROMORPHONE HYDROCHLORIDE
     Dates: start: 20180307, end: 20180415
  20. HYDROMORPHONE HYDROCHLORIDE [Concomitant]
     Active Substance: HYDROMORPHONE HYDROCHLORIDE
     Dosage: ONGOING = CHECKED
     Dates: start: 20171115
  21. MAGNESIUM CARBONATE\MAGNESIUM OXIDE [Concomitant]
     Active Substance: MAGNESIUM CARBONATE\MAGNESIUM OXIDE
     Dates: start: 20171115, end: 20180425
  22. ZOFRAN [Concomitant]
     Active Substance: ONDANSETRON HYDROCHLORIDE
     Dates: start: 20171113, end: 20180307
  23. ZOFRAN [Concomitant]
     Active Substance: ONDANSETRON HYDROCHLORIDE
     Dates: start: 20171115, end: 20180519
  24. ZOFRAN [Concomitant]
     Active Substance: ONDANSETRON HYDROCHLORIDE
     Dates: start: 20180509, end: 20180509
  25. NOVALGIN (AUSTRIA) [Concomitant]
     Dates: start: 20171215
  26. VOLTAREN [Concomitant]
     Active Substance: DICLOFENAC SODIUM
     Dates: start: 20171215, end: 20180515
  27. VOLTAREN [Concomitant]
     Active Substance: DICLOFENAC SODIUM
     Dates: start: 20180515, end: 20180519
  28. BUPRENORPHINE [Concomitant]
     Active Substance: BUPRENORPHINE
     Dates: start: 20171227
  29. BUPRENORPHINE [Concomitant]
     Active Substance: BUPRENORPHINE
     Dates: start: 20180411, end: 20180519
  30. FUROSEMIDE\SPIRONOLACTONE [Concomitant]
     Active Substance: FUROSEMIDE\SPIRONOLACTONE
     Dates: start: 20180101, end: 20180329
  31. DRONABINOL [Concomitant]
     Active Substance: DRONABINOL
     Dates: start: 20180321, end: 20180329
  32. ERYPO [Concomitant]
     Indication: Anaemia
     Dates: start: 20180329
  33. LASIX [Concomitant]
     Active Substance: FUROSEMIDE
     Dates: start: 20180329, end: 20180519
  34. HALDOL [Concomitant]
     Active Substance: HALOPERIDOL
     Dates: start: 20180409, end: 20180519
  35. LOVENOX [Concomitant]
     Active Substance: ENOXAPARIN SODIUM
     Dates: start: 20180409, end: 20180419
  36. LYRICA [Concomitant]
     Active Substance: PREGABALIN
     Dosage: ONGOING = NOT CHECKED
     Dates: start: 20180409, end: 20180425
  37. POLYETHYLENE GLYCOL 3350\POTASSIUM CHLORIDE\SODIUM BICARBONATE\SODIUM [Concomitant]
     Active Substance: POLYETHYLENE GLYCOL 3350\POTASSIUM CHLORIDE\SODIUM BICARBONATE\SODIUM CHLORIDE
     Dosage: ONGOING = NOT CHECKED
     Dates: start: 20180409, end: 20180415
  38. DICLOFENAC SODIUM\ORPHENADRINE CITRATE [Concomitant]
     Active Substance: DICLOFENAC SODIUM\ORPHENADRINE CITRATE
     Dates: start: 20180409, end: 20180417
  39. BUPRENORPHINE HYDROCHLORIDE [Concomitant]
     Active Substance: BUPRENORPHINE HYDROCHLORIDE
     Dosage: ONGOING = NOT CHECKED
     Dates: start: 20180409, end: 20180415
  40. IRON ISOMALTOSIDE 1000 [Concomitant]
     Active Substance: IRON ISOMALTOSIDE 1000
     Indication: Anaemia
     Dosage: 100 MG/ML
     Dates: start: 20180410, end: 20180410
  41. PROXEN [Concomitant]
     Dosage: ONGOING = NOT CHECKED
     Dates: start: 20180417, end: 20180417
  42. FENTANYL CITRATE [Concomitant]
     Active Substance: FENTANYL CITRATE
     Dates: start: 20180419, end: 20180519
  43. CEFUROXIME [Concomitant]
     Active Substance: CEFUROXIME
     Dates: start: 20180419, end: 20180424
  44. METRONIDAZOLE [Concomitant]
     Active Substance: METRONIDAZOLE
     Indication: Diarrhoea
     Dates: start: 20180425, end: 20180501
  45. FRAGMIN [Concomitant]
     Active Substance: DALTEPARIN SODIUM
     Dosage: ONGOING = NOT CHECKED
     Dates: start: 20180425, end: 20180427
  46. ALOXI [Concomitant]
     Active Substance: PALONOSETRON HYDROCHLORIDE
     Dates: start: 20180103, end: 20180307
  47. ERYPO [Concomitant]
     Indication: Anaemia
     Dates: start: 20180329, end: 20180519
  48. XGEVA [Concomitant]
     Active Substance: DENOSUMAB
  49. MOXIFLOXACIN [Concomitant]
     Active Substance: MOXIFLOXACIN
  50. ALBUMIN HUMAN [Concomitant]
     Active Substance: ALBUMIN HUMAN
  51. FENTANYL [Concomitant]
     Active Substance: FENTANYL\FENTANYL CITRATE
  52. DORMICUM [Concomitant]
  53. PROPOFOL [Concomitant]
     Active Substance: PROPOFOL

REACTIONS (2)
  - Diarrhoea [Recovered/Resolved]
  - Nocturnal dyspnoea [Unknown]

NARRATIVE: CASE EVENT DATE: 20180401
